FAERS Safety Report 7734655-0 (Version None)
Quarter: 2011Q3

REPORT INFORMATION
  Report Type: 
  Country: None (occurrence: None)
  Receive Date: 20110907
  Receipt Date: 20110902
  Transmission Date: 20111222
  Serious: Yes (Hospitalization)
  Sender: FDA-Public Use
  Company Number: CA-ABBOTT-11P-028-0847157-00

PATIENT
  Sex: Female
  Weight: 45.4 kg

DRUGS (1)
  1. HUMIRA [Suspect]
     Indication: RHEUMATOID ARTHRITIS
     Route: 058
     Dates: start: 20100427, end: 20110808

REACTIONS (5)
  - SYNOVITIS [None]
  - DRUG INEFFECTIVE [None]
  - ARTHRALGIA [None]
  - LOCAL SWELLING [None]
  - RHEUMATOID ARTHRITIS [None]
